FAERS Safety Report 9512314 (Version 1)
Quarter: 2013Q3

REPORT INFORMATION
  Report Type: Spontaneous
  Country: US (occurrence: US)
  Receive Date: 20130910
  Receipt Date: 20130910
  Transmission Date: 20140515
  Serious: Yes (Other)
  Sender: FDA-Public Use
  Company Number: -SAAVPROD-BMS17017047

PATIENT
  Age: 83 Year
  Sex: Male

DRUGS (5)
  1. AVAPRO [Suspect]
     Indication: HYPERTENSION
  2. NORVASC [Suspect]
  3. TOPROL [Suspect]
  4. ZOCOR [Concomitant]
  5. BABY ASPIRIN [Concomitant]

REACTIONS (1)
  - Hypertension [Unknown]
